FAERS Safety Report 19085899 (Version 2)
Quarter: 2021Q2

REPORT INFORMATION
  Report Type: Spontaneous
  Country: US (occurrence: US)
  Receive Date: 20210402
  Receipt Date: 20210406
  Transmission Date: 20210717
  Serious: Yes (Other)
  Sender: FDA-Public Use
  Company Number: US-35507-2021-04107

PATIENT
  Age: 28 Year
  Sex: Male
  Weight: 83.6 kg

DRUGS (25)
  1. KETAMINE [Concomitant]
     Active Substance: KETAMINE
     Dosage: 196 MILLIGRAM, DAY 32
     Route: 045
     Dates: start: 2020
  2. KETAMINE [Concomitant]
     Active Substance: KETAMINE
     Dosage: 168 MILLIGRAM, DAY 34
     Route: 045
     Dates: start: 2020
  3. CITALOPRAM [Concomitant]
     Active Substance: CITALOPRAM HYDROBROMIDE
     Indication: MAJOR DEPRESSION
  4. LAMOTRIGINE. [Concomitant]
     Active Substance: LAMOTRIGINE
     Indication: PRODUCT USED FOR UNKNOWN INDICATION
     Dosage: 200 MILLIGRAM
     Route: 065
  5. KETAMINE [Concomitant]
     Active Substance: KETAMINE
     Dosage: 196 MILLIGRAM, DAY 39
     Route: 045
     Dates: start: 2020
  6. KETAMINE [Concomitant]
     Active Substance: KETAMINE
     Dosage: 140 MILLIGRAM, DAY 75
     Route: 045
     Dates: start: 2020
  7. SERTRALINE [Suspect]
     Active Substance: SERTRALINE HYDROCHLORIDE
     Indication: OBSESSIVE-COMPULSIVE DISORDER
     Dosage: 200 MILLIGRAM
     Route: 065
  8. SERTRALINE [Suspect]
     Active Substance: SERTRALINE HYDROCHLORIDE
     Indication: MAJOR DEPRESSION
  9. ARIPIPRAZOLE. [Suspect]
     Active Substance: ARIPIPRAZOLE
     Indication: MAJOR DEPRESSION
     Dosage: 5 MILLIGRAM
     Route: 065
  10. KETAMINE [Concomitant]
     Active Substance: KETAMINE
     Indication: BIPOLAR DISORDER
     Dosage: 168 MILLIGRAM, DAY 5, 7 AND 12
     Route: 045
  11. KETAMINE [Concomitant]
     Active Substance: KETAMINE
     Dosage: 168 MILLIGRAM, DAY 27
     Route: 045
  12. KETAMINE [Concomitant]
     Active Substance: KETAMINE
     Indication: PSYCHIATRIC SYMPTOM
     Dosage: 84 MILLIGRAM, DAY 1
     Route: 045
  13. KETAMINE [Concomitant]
     Active Substance: KETAMINE
     Dosage: 168 MILLIGRAM, DAY 27
     Route: 045
  14. KETAMINE [Concomitant]
     Active Substance: KETAMINE
     Dosage: 140 MILLIGRAM, DAY 21 AND 23
     Route: 045
  15. FLUOXETIN [Concomitant]
     Active Substance: FLUOXETINE HYDROCHLORIDE
     Indication: OBSESSIVE-COMPULSIVE DISORDER
     Dosage: 60 MILLIGRAM
     Route: 065
  16. ESCITALOPRAM [Concomitant]
     Active Substance: ESCITALOPRAM OXALATE
     Indication: MAJOR DEPRESSION
  17. ARIPIPRAZOLE. [Suspect]
     Active Substance: ARIPIPRAZOLE
     Indication: OBSESSIVE-COMPULSIVE DISORDER
  18. KETAMINE [Concomitant]
     Active Substance: KETAMINE
     Dosage: 140 MILLIGRAM, DAY 21 AND 23
     Route: 045
  19. ESCITALOPRAM [Concomitant]
     Active Substance: ESCITALOPRAM OXALATE
     Indication: OBSESSIVE-COMPULSIVE DISORDER
     Dosage: 20 MILLIGRAM, QD
     Route: 065
  20. LAMOTRIGINE. [Concomitant]
     Active Substance: LAMOTRIGINE
     Dosage: 400 MILLIGRAM, QD, MAINTENANCE THERAPY
     Route: 065
     Dates: start: 2019
  21. KETAMINE [Concomitant]
     Active Substance: KETAMINE
     Dosage: 196 MILLIGRAM, DAY 49, 53, 55, 60, 62, 65, 67
     Route: 045
     Dates: start: 2020
  22. CITALOPRAM [Concomitant]
     Active Substance: CITALOPRAM HYDROBROMIDE
     Indication: OBSESSIVE-COMPULSIVE DISORDER
     Dosage: 40 MILLIGRAM
     Route: 065
  23. KETAMINE [Concomitant]
     Active Substance: KETAMINE
     Dosage: 168 MILLIGRAM, DAY 48
     Route: 045
     Dates: start: 2020
  24. KETAMINE [Concomitant]
     Active Substance: KETAMINE
     Indication: BIPOLAR II DISORDER
     Dosage: 112 MILLIGRAM, DAY 2
     Route: 045
  25. FLUOXETIN [Concomitant]
     Active Substance: FLUOXETINE HYDROCHLORIDE
     Indication: MAJOR DEPRESSION

REACTIONS (2)
  - Akathisia [Unknown]
  - Hypomania [Recovered/Resolved]
